FAERS Safety Report 4658320-1 (Version None)
Quarter: 2005Q2

REPORT INFORMATION
  Report Type: 
  Country: None (occurrence: None)
  Receive Date: 20050510
  Receipt Date: 20050510
  Transmission Date: 20051028
  Serious: Yes (Hospitalization)
  Sender: FDA-Public Use
  Company Number: None

PATIENT
  Age: 84 Year
  Sex: Female

DRUGS (11)
  1. ASPIRIN [Suspect]
     Indication: CORONARY ARTERY DISEASE
     Dosage: 81MG   DAILY  ORAL
     Route: 048
     Dates: start: 20050114, end: 20050117
  2. ASPIRIN [Suspect]
     Indication: PROPHYLAXIS
     Dosage: 81MG   DAILY  ORAL
     Route: 048
     Dates: start: 20050114, end: 20050117
  3. CLOPIDOGREL   75MG [Suspect]
     Indication: ANGIOPLASTY
     Dosage: 75MG   DAILY   ORAL
     Route: 048
     Dates: start: 20040114, end: 20050117
  4. PIPERACILLIN/TAZOBACTAM [Concomitant]
  5. NITROGLYCERIN [Concomitant]
  6. METOPROLOL [Concomitant]
  7. AMLODIPINE [Concomitant]
  8. PANTOPRAZOLE SODIUM [Concomitant]
  9. ALLOPURINOL [Concomitant]
  10. MIRTAZAPINE [Concomitant]
  11. OLANZAPINE [Concomitant]

REACTIONS (4)
  - CHOLECYSTITIS ACUTE [None]
  - CHOLELITHIASIS [None]
  - DEPRESSED LEVEL OF CONSCIOUSNESS [None]
  - HAEMORRHAGE INTRACRANIAL [None]
